FAERS Safety Report 7339705-1 (Version None)
Quarter: 2011Q1

REPORT INFORMATION
  Report Type: 
  Country: None (occurrence: None)
  Receive Date: 20110309
  Receipt Date: 20110228
  Transmission Date: 20110831
  Serious: No
  Sender: FDA-Public Use
  Company Number: US-ELI_LILLY_AND_COMPANY-US201102000361

PATIENT
  Sex: Female

DRUGS (2)
  1. BYETTA [Concomitant]
     Dosage: 5 UG, 2/D
  2. HUMALOG MIX 75/25 [Suspect]
     Indication: DIABETES MELLITUS
     Dosage: UNK, AS NEEDED
     Dates: start: 20060101

REACTIONS (1)
  - NO ADVERSE EVENT [None]
